FAERS Safety Report 14223509 (Version 1)
Quarter: 2017Q4

REPORT INFORMATION
  Report Type: Spontaneous
  Country: DE (occurrence: DE)
  Receive Date: 20171125
  Receipt Date: 20171125
  Transmission Date: 20180321
  Serious: Yes (Death, Life-Threatening)
  Sender: FDA-Public Use
  Company Number: DE-B.I. PHARMACEUTICALS,INC./RIDGEFIELD-2017-BI-062940

PATIENT
  Age: 66 Year
  Sex: Male
  Weight: 86 kg

DRUGS (1)
  1. PRAXBIND [Suspect]
     Active Substance: IDARUCIZUMAB
     Indication: ISCHAEMIC STROKE
     Route: 065

REACTIONS (5)
  - Cardiogenic shock [Fatal]
  - Coronary artery occlusion [Fatal]
  - Thrombosis [Unknown]
  - Ischaemic stroke [Fatal]
  - Calcinosis [Unknown]

NARRATIVE: CASE EVENT DATE: 20170305
